FAERS Safety Report 5044784-0 (Version None)
Quarter: 2006Q3

REPORT INFORMATION
  Report Type: 
  Country: None (occurrence: None)
  Receive Date: 20060707
  Receipt Date: 20060321
  Transmission Date: 20061208
  Serious: No
  Sender: FDA-Public Use
  Company Number: 2006PK00538

PATIENT
  Age: 54 Year
  Sex: Female

DRUGS (13)
  1. SEROQUEL [Suspect]
     Route: 048
     Dates: start: 20050913
  2. SEROQUEL [Suspect]
     Route: 048
     Dates: start: 20050914
  3. SEROQUEL [Suspect]
     Route: 048
     Dates: start: 20050915
  4. SEROQUEL [Suspect]
     Route: 048
     Dates: start: 20050916
  5. SEROQUEL [Suspect]
     Route: 048
     Dates: start: 20050917
  6. SEROQUEL [Suspect]
     Route: 048
     Dates: start: 20050918
  7. SEROQUEL [Suspect]
     Route: 048
     Dates: start: 20050919, end: 20050920
  8. SEROQUEL [Suspect]
     Route: 048
     Dates: start: 20050920, end: 20050921
  9. SEROQUEL [Suspect]
     Route: 048
     Dates: start: 20050921, end: 20051012
  10. SEROQUEL [Suspect]
     Route: 048
     Dates: start: 20051013
  11. SEROQUEL [Suspect]
     Route: 048
     Dates: start: 20051014, end: 20051017
  12. SEROQUEL [Suspect]
     Route: 048
     Dates: start: 20051018, end: 20051020
  13. SEROQUEL [Suspect]
     Route: 048
     Dates: start: 20051021

REACTIONS (2)
  - NEUTROPENIA [None]
  - WHITE BLOOD CELL COUNT DECREASED [None]
